FAERS Safety Report 19555618 (Version 1)
Quarter: 2021Q3

REPORT INFORMATION
  Report Type: Spontaneous
  Country: CZ (occurrence: CZ)
  Receive Date: 20210715
  Receipt Date: 20210715
  Transmission Date: 20211014
  Serious: Yes (Other)
  Sender: FDA-Public Use
  Company Number: CZ-MYLANLABS-2021M1042051

PATIENT
  Sex: Female

DRUGS (10)
  1. OLANZAPINE. [Suspect]
     Active Substance: OLANZAPINE
     Indication: MULTIMORBIDITY
     Dosage: 20 MILLIGRAM
  2. ARIPIPRAZOLE. [Suspect]
     Active Substance: ARIPIPRAZOLE
     Indication: MULTIMORBIDITY
     Dosage: 15 MILLIGRAM
  3. QUETIAPINE. [Suspect]
     Active Substance: QUETIAPINE
     Indication: MULTIMORBIDITY
     Dosage: 400 MILLIGRAM
  4. QUETIAPINE. [Suspect]
     Active Substance: QUETIAPINE
     Indication: ATTENTION DEFICIT HYPERACTIVITY DISORDER
  5. ESCITALOPRAM [Suspect]
     Active Substance: ESCITALOPRAM OXALATE
     Indication: MULTIMORBIDITY
     Dosage: 10 MILLIGRAM
  6. PREGABALIN. [Concomitant]
     Active Substance: PREGABALIN
     Dosage: UNK
  7. AGOMELATINE [Concomitant]
     Active Substance: AGOMELATINE
     Indication: AFFECTIVE DISORDER
     Dosage: UNK
  8. ESCITALOPRAM [Suspect]
     Active Substance: ESCITALOPRAM OXALATE
     Indication: ATTENTION DEFICIT HYPERACTIVITY DISORDER
  9. OLANZAPINE. [Suspect]
     Active Substance: OLANZAPINE
     Indication: ATTENTION DEFICIT HYPERACTIVITY DISORDER
  10. ARIPIPRAZOLE. [Suspect]
     Active Substance: ARIPIPRAZOLE
     Indication: ATTENTION DEFICIT HYPERACTIVITY DISORDER

REACTIONS (9)
  - Somnolence [Unknown]
  - Psychiatric decompensation [Unknown]
  - Weight increased [Unknown]
  - Affective disorder [Unknown]
  - Accelerated hypertension [Unknown]
  - Sedation [Unknown]
  - Type 2 diabetes mellitus [Unknown]
  - Akathisia [Unknown]
  - Drug ineffective [Unknown]
